FAERS Safety Report 5121942-8 (Version None)
Quarter: 2006Q4

REPORT INFORMATION
  Report Type: 
  Country: None (occurrence: None)
  Receive Date: 20061003
  Receipt Date: 20060919
  Transmission Date: 20070319
  Serious: Yes (Hospitalization)
  Sender: FDA-Public Use
  Company Number: E2090-00095-CLI-JP

PATIENT
  Age: 79 Year
  Sex: Male

DRUGS (1)
  1. ZONEGRAN [Suspect]
     Indication: PARKINSON'S DISEASE
     Dosage: 1 IN 1 D, ORAL
     Route: 048
     Dates: start: 20050115, end: 20060918

REACTIONS (1)
  - PNEUMONIA ASPIRATION [None]
